FAERS Safety Report 5343280-0 (Version None)
Quarter: 2007Q2

REPORT INFORMATION
  Report Type: 
  Country: None (occurrence: None)
  Receive Date: 20070502
  Receipt Date: 20070109
  Transmission Date: 20071010
  Serious: Yes (Other)
  Sender: FDA-Public Use
  Company Number: PHEH2006US13472

PATIENT
  Age: 62 Year
  Sex: Female
  Weight: 63.5 kg

DRUGS (3)
  1. LOTREL [Suspect]
     Indication: HYPERTENSION
     Dosage: 5/20 MG, QD, ORAL
     Route: 048
     Dates: start: 20051205, end: 20060606
  2. CITRACAL (CALCIUM CITRATE) [Concomitant]
  3. VITAMINS (NO INGREDIENTS/SUBSTANCES) [Concomitant]

REACTIONS (10)
  - ANGIOEDEMA [None]
  - BRONCHITIS [None]
  - COUGH [None]
  - ERYTHEMA [None]
  - LOCAL SWELLING [None]
  - LYMPHADENOPATHY [None]
  - PHARYNGEAL OEDEMA [None]
  - RHINITIS ALLERGIC [None]
  - SPEECH DISORDER [None]
  - WEIGHT DECREASED [None]
